FAERS Safety Report 7487927-1 (Version None)
Quarter: 2011Q2

REPORT INFORMATION
  Report Type: 
  Country: None (occurrence: None)
  Receive Date: 20110518
  Receipt Date: 20110412
  Transmission Date: 20111010
  Serious: Yes (Other)
  Sender: FDA-Public Use
  Company Number: US-BAYER-2011-015277

PATIENT
  Age: 18 Year
  Sex: Female
  Weight: 97.506 kg

DRUGS (10)
  1. ADVAIR DISKUS 100/50 [Concomitant]
  2. MELOXICAM [Concomitant]
     Dosage: 7.5 MG, UNK
  3. DROSPIRENONE AND ETHINYL ESTRADIOL [Suspect]
     Indication: PRODUCT USED FOR UNKNOWN INDICATION
     Dosage: UNK
     Dates: start: 20080705, end: 20100327
  4. XOPENEX [Concomitant]
     Dosage: 45 UNK, UNK
  5. OXYCODONE HCL AND ACETAMINOPHEN [Concomitant]
  6. AMOXICILLIN [Concomitant]
     Dosage: 500 MG, UNK
  7. YASMIN [Suspect]
     Indication: PRODUCT USED FOR UNKNOWN INDICATION
     Dosage: UNK
     Dates: start: 20070302, end: 20080704
  8. AZITHROMYCIN [Concomitant]
     Dosage: 250 MG, UNK
  9. CEFDINIR [Concomitant]
     Dosage: 300 MG, UNK
  10. ACETAMINOPHEN W/ CODEINE [Concomitant]

REACTIONS (2)
  - CHOLECYSTITIS CHRONIC [None]
  - GALLBLADDER DISORDER [None]
